FAERS Safety Report 5451754-7 (Version None)
Quarter: 2007Q3

REPORT INFORMATION
  Report Type: 
  Country: None (occurrence: None)
  Receive Date: 20070912
  Receipt Date: 20070829
  Transmission Date: 20080115
  Serious: Yes (Other)
  Sender: FDA-Public Use
  Company Number: 2007VX002233

PATIENT
  Age: 38 Year
  Sex: Female

DRUGS (1)
  1. FLURAZEPAM HYDROCHLORIDE [Suspect]

REACTIONS (4)
  - INTENTIONAL OVERDOSE [None]
  - MEDICATION ERROR [None]
  - SLUGGISHNESS [None]
  - SUICIDE ATTEMPT [None]
